FAERS Safety Report 10959487 (Version 2)
Quarter: 2015Q1

REPORT INFORMATION
  Report Type: Spontaneous
  Country: IN (occurrence: IN)
  Receive Date: 20150327
  Receipt Date: 20150331
  Transmission Date: 20150721
  Serious: No
  Sender: FDA-Public Use
  Company Number: IN-MERCK-1503IND012553

PATIENT
  Age: 83 Year
  Sex: Male
  Weight: 60 kg

DRUGS (1)
  1. JANUVIA [Suspect]
     Active Substance: SITAGLIPTIN PHOSPHATE
     Dosage: 2 DF, BID
     Route: 048

REACTIONS (3)
  - Overdose [Unknown]
  - Skin tightness [Recovered/Resolved]
  - Inappropriate schedule of drug administration [Unknown]
